FAERS Safety Report 13309667 (Version 2)
Quarter: 2017Q2

REPORT INFORMATION
  Report Type: Spontaneous
  Country: FR (occurrence: FR)
  Receive Date: 20170309
  Receipt Date: 20170425
  Transmission Date: 20170830
  Serious: Yes (Other)
  Sender: FDA-Public Use
  Company Number: FR-PFIZER INC-2017096334

PATIENT
  Age: 59 Year
  Sex: Female
  Weight: 76 kg

DRUGS (3)
  1. PERJETA [Concomitant]
     Active Substance: PERTUZUMAB
     Indication: BREAST CANCER
     Dosage: 840 MG, CYCLIC
     Dates: start: 20161118
  2. HERCEPTIN [Concomitant]
     Active Substance: TRASTUZUMAB
     Indication: BREAST CANCER
     Dosage: 8 MG/KG, CYCLIC
     Dates: start: 20161118
  3. DOCETAXEL HOSPIRA [Suspect]
     Active Substance: DOCETAXEL
     Indication: BREAST CANCER
     Dosage: 75 MG/M2 (IE 135 MG), CYCLIC
     Route: 041
     Dates: start: 20161118, end: 20161209

REACTIONS (1)
  - Gastritis erosive [Recovered/Resolved]

NARRATIVE: CASE EVENT DATE: 20161121
